FAERS Safety Report 8346705-1 (Version None)
Quarter: 2012Q2

REPORT INFORMATION
  Report Type: 
  Country: None (occurrence: None)
  Receive Date: 20120509
  Receipt Date: 20120502
  Transmission Date: 20120825
  Serious: Yes (Other)
  Sender: FDA-Public Use
  Company Number: US-UCBSA-033094

PATIENT
  Sex: Male
  Weight: 11.8 kg

DRUGS (6)
  1. MULTI-VITAMINS [Concomitant]
     Route: 063
  2. KEPPRA [Suspect]
     Route: 063
  3. MULTI-VITAMINS [Concomitant]
     Route: 064
     Dates: start: 20080801
  4. FOLIC ACID [Concomitant]
     Route: 064
     Dates: start: 20080801
  5. FOLIC ACID [Concomitant]
     Route: 063
  6. KEPPRA [Suspect]
     Route: 064

REACTIONS (3)
  - EXPOSURE DURING BREAST FEEDING [None]
  - FOETAL EXPOSURE DURING PREGNANCY [None]
  - SPEECH DISORDER [None]
